FAERS Safety Report 6150723-1 (Version None)
Quarter: 2009Q2

REPORT INFORMATION
  Report Type: 
  Country: None (occurrence: None)
  Receive Date: 20090408
  Receipt Date: 20090326
  Transmission Date: 20091009
  Serious: Yes (Hospitalization)
  Sender: FDA-Public Use
  Company Number: 235218J08USA

PATIENT
  Age: 49 Year
  Sex: Female
  Weight: 50 kg

DRUGS (9)
  1. REBIF [Suspect]
     Indication: OFF LABEL USE
     Dosage: 44 MCG, 3 IN 1 WEEKS, SUBCUTANEOUS
     Route: 058
     Dates: start: 20050721, end: 20090201
  2. LEVOTHYROXINE SODIUM [Concomitant]
  3. ESTRADIOL [Concomitant]
  4. VYTORIN [Concomitant]
  5. LORTAB (VICODIN) [Concomitant]
  6. SOMA [Concomitant]
  7. FENTANYL-100 [Concomitant]
  8. DEPAKOTE [Concomitant]
  9. ESTROGENIC SUBSTANCE [Concomitant]

REACTIONS (12)
  - CONDITION AGGRAVATED [None]
  - DRUG HYPERSENSITIVITY [None]
  - FACIAL BONES FRACTURE [None]
  - GRAND MAL CONVULSION [None]
  - IMPAIRED HEALING [None]
  - LYMPHADENOPATHY [None]
  - MULTIPLE SCLEROSIS [None]
  - OFF LABEL USE [None]
  - POST PROCEDURAL COMPLICATION [None]
  - SEROMA [None]
  - SINUSITIS [None]
  - SURGICAL PROCEDURE REPEATED [None]
